FAERS Safety Report 8082395-3 (Version None)
Quarter: 2012Q1

REPORT INFORMATION
  Report Type: 
  Country: None (occurrence: None)
  Receive Date: 20120127
  Receipt Date: 20110215
  Transmission Date: 20120608
  Serious: No
  Sender: FDA-Public Use
  Company Number: US-ABBOTT-11P-163-0706167-00

PATIENT
  Sex: Female
  Weight: 63.56 kg

DRUGS (2)
  1. ARAVA [Concomitant]
     Indication: PRODUCT USED FOR UNKNOWN INDICATION
  2. HUMIRA [Suspect]
     Indication: RHEUMATOID ARTHRITIS
     Route: 058
     Dates: start: 20110118

REACTIONS (3)
  - LOCALISED INFECTION [None]
  - ERYTHEMA MULTIFORME [None]
  - ABDOMINAL TENDERNESS [None]
